FAERS Safety Report 18249598 (Version 1)
Quarter: 2020Q3

REPORT INFORMATION
  Report Type: Report from Study
  Country: CA (occurrence: CA)
  Receive Date: 20200909
  Receipt Date: 20200909
  Transmission Date: 20201103
  Serious: Yes (Other)
  Sender: FDA-Public Use
  Company Number: CA-ASTRAZENECA-2020SF12705

PATIENT
  Age: 74 Year
  Sex: Female

DRUGS (10)
  1. DENOSUMAB [Suspect]
     Active Substance: DENOSUMAB
     Indication: OSTEOPOROSIS POSTMENOPAUSAL
     Dosage: 60.0MG UNKNOWN
     Route: 058
  2. ROSUVASTATIN CALCIUM. [Concomitant]
     Active Substance: ROSUVASTATIN CALCIUM
  3. ZOMIG [Suspect]
     Active Substance: ZOLMITRIPTAN
     Indication: MIGRAINE
     Route: 065
  4. ATENOLOL. [Concomitant]
     Active Substance: ATENOLOL
     Route: 065
  5. ACETAMINOPHEN. [Concomitant]
     Active Substance: ACETAMINOPHEN
  6. CALCIUM CHLORIDE. [Suspect]
     Active Substance: CALCIUM CHLORIDE
     Indication: BLOOD CALCIUM ABNORMAL
     Route: 065
  7. COD LIVER OIL [Concomitant]
     Active Substance: COD LIVER OIL
     Route: 065
  8. PANTOPRAZOLE MAGNESIUM [Concomitant]
     Active Substance: PANTOPRAZOLE MAGNESIUM
  9. VITAMIN D (COLECALCIFEROL) [Concomitant]
     Active Substance: CHOLECALCIFEROL
  10. CALCIUM CARBONATE. [Concomitant]
     Active Substance: CALCIUM CARBONATE

REACTIONS (9)
  - Weight decreased [Unknown]
  - Breast mass [Unknown]
  - Migraine [Unknown]
  - Cataract [Unknown]
  - Palpitations [Unknown]
  - Malaise [Unknown]
  - Influenza [Unknown]
  - Nausea [Unknown]
  - Pain [Unknown]
